FAERS Safety Report 24670027 (Version 1)
Quarter: 2024Q4

REPORT INFORMATION
  Report Type: Spontaneous
  Country: IT (occurrence: IT)
  Receive Date: 20241127
  Receipt Date: 20241127
  Transmission Date: 20250115
  Serious: Yes (Life-Threatening, Hospitalization, Other)
  Sender: MERCK
  Company Number: None

PATIENT
  Age: 69 Year
  Sex: Male
  Weight: 80 kg

DRUGS (3)
  1. KEYTRUDA [Suspect]
     Active Substance: PEMBROLIZUMAB
     Indication: Lung adenocarcinoma
     Dosage: 200 MG EVERY 21 DAYS
     Route: 042
     Dates: start: 20240820, end: 20240820
  2. PEMETREXED DISODIUM HEMIPENTAHYDRATE [Suspect]
     Active Substance: PEMETREXED DISODIUM HEMIPENTAHYDRATE
     Indication: Lung adenocarcinoma
     Dosage: 500 MG/M2 G 1 EVERY 21; PERFORMED AT A 20% REDUCED DOSE
     Route: 042
     Dates: start: 20240820, end: 20240820
  3. CARBOPLATIN [Suspect]
     Active Substance: CARBOPLATIN
     Indication: Lung adenocarcinoma
     Dosage: AUC 5 G 1 EVERY 21, DOSE REDUCED BY 20%
     Route: 042
     Dates: start: 20240820, end: 20240820

REACTIONS (8)
  - Febrile neutropenia [Recovering/Resolving]
  - Respiratory failure [Recovering/Resolving]
  - Sepsis [Recovered/Resolved with Sequelae]
  - Thrombocytopenia [Recovering/Resolving]
  - Mucosal inflammation [Recovering/Resolving]
  - Generalised oedema [Recovering/Resolving]
  - Anaemia [Recovering/Resolving]
  - Diarrhoea [Recovering/Resolving]

NARRATIVE: CASE EVENT DATE: 20240828
